FAERS Safety Report 25826886 (Version 2)
Quarter: 2025Q3

REPORT INFORMATION
  Report Type: Report from Study
  Country: US (occurrence: US)
  Receive Date: 20250920
  Receipt Date: 20250930
  Transmission Date: 20251020
  Serious: Yes (Hospitalization)
  Sender: ABBVIE
  Company Number: US-ABBVIE-6465702

PATIENT
  Age: 73 Year
  Sex: Female
  Weight: 44 kg

DRUGS (4)
  1. VYALEV [Suspect]
     Active Substance: FOSCARBIDOPA\FOSLEVODOPA
     Indication: Parkinson^s disease
     Route: 058
     Dates: start: 20250605, end: 20250910
  2. AMANTADINE [Concomitant]
     Active Substance: AMANTADINE
     Indication: Dyskinesia
  3. SYNTHROID [Concomitant]
     Active Substance: LEVOTHYROXINE SODIUM
     Indication: Hypothyroidism
  4. CARBIDOPA\LEVODOPA [Concomitant]
     Active Substance: CARBIDOPA\LEVODOPA
     Indication: Product used for unknown indication
     Route: 048

REACTIONS (3)
  - Hip fracture [Recovering/Resolving]
  - Fall [Recovering/Resolving]
  - Fracture pain [Recovering/Resolving]

NARRATIVE: CASE EVENT DATE: 20250901
